FAERS Safety Report 7505744-0 (Version None)
Quarter: 2011Q2

REPORT INFORMATION
  Report Type: 
  Country: None (occurrence: None)
  Receive Date: 20110526
  Receipt Date: 20110523
  Transmission Date: 20111010
  Serious: Yes (Hospitalization, Other)
  Sender: FDA-Public Use
  Company Number: AT-PFIZER INC-2011111361

PATIENT
  Age: 52 Year
  Sex: Male

DRUGS (13)
  1. LORAZEPAM [Concomitant]
     Dosage: 1.5 MG, 1X/DAY
     Dates: start: 20110330, end: 20110330
  2. SEROQUEL [Suspect]
     Dosage: 50 MG, 1X/DAY
     Route: 048
     Dates: start: 20110327, end: 20110327
  3. LORAZEPAM [Concomitant]
     Dosage: 0.5 MG, 1X/DAY
     Route: 048
     Dates: start: 20110404, end: 20110405
  4. LORAZEPAM [Concomitant]
     Dosage: 0.5 MG, 1X/DAY
     Route: 048
     Dates: start: 20110401, end: 20110401
  5. EFFEXOR XR [Suspect]
     Dosage: 75 MG, 1X/DAY
     Route: 048
     Dates: start: 20110328, end: 20110328
  6. EFFEXOR XR [Suspect]
     Dosage: 225 MG, 1X/DAY
     Route: 048
     Dates: start: 20110412
  7. SEROQUEL [Suspect]
     Dosage: 62.5 MG, 1X/DAY
     Route: 048
     Dates: start: 20110404
  8. LORAZEPAM [Concomitant]
     Dosage: 2 MG, 1X/DAY
     Route: 048
     Dates: start: 20110328, end: 20110329
  9. LORAZEPAM [Concomitant]
     Dosage: 1 MG, 1X/DAY
     Route: 048
     Dates: start: 20110402, end: 20110403
  10. LORAZEPAM [Concomitant]
     Dosage: 3.5 MG, 1X/DAY
     Route: 048
     Dates: start: 20110327, end: 20110327
  11. EFFEXOR XR [Suspect]
     Dosage: 150 MG, 1X/DAY
     Route: 048
     Dates: start: 20110329, end: 20110411
  12. SEROQUEL [Suspect]
     Dosage: 37.5 MG, 1X/DAY
     Route: 048
     Dates: start: 20110328, end: 20110403
  13. LORAZEPAM [Concomitant]
     Dosage: 1 MG, 1X/DAY
     Route: 048
     Dates: start: 20110331, end: 20110331

REACTIONS (1)
  - PULMONARY EMBOLISM [None]
